FAERS Safety Report 10255484 (Version 1)
Quarter: 2014Q2

REPORT INFORMATION
  Report Type: Spontaneous
  Country: US (occurrence: US)
  Receive Date: 20140624
  Receipt Date: 20140624
  Transmission Date: 20141212
  Serious: Yes (Other)
  Sender: FDA-Public Use
  Company Number: CHPA2014US008448

PATIENT
  Sex: Female

DRUGS (2)
  1. GAS-X ULTRA STRENGTH [Suspect]
     Route: 048
  2. COLACE [Concomitant]

REACTIONS (1)
  - Irritable bowel syndrome [Unknown]
